FAERS Safety Report 17943967 (Version 1)
Quarter: 2020Q2

REPORT INFORMATION
  Report Type: Spontaneous
  Country: SE (occurrence: SE)
  Receive Date: 20200625
  Receipt Date: 20200625
  Transmission Date: 20200714
  Serious: Yes (Disabling)
  Sender: FDA-Public Use
  Company Number: SE-MYLANLABS-2020M1057995

PATIENT
  Age: 56 Year
  Sex: Female
  Weight: 70 kg

DRUGS (2)
  1. ERY-MAX 250 MG ENTEROKAPSEL, H?RD [Suspect]
     Active Substance: ERYTHROMYCIN
     Indication: ROSACEA
     Dosage: 3 PER DAG
     Dates: start: 20181201, end: 20200501
  2. ERY-MAX 250 MG ENTEROKAPSEL, H?RD [Suspect]
     Active Substance: ERYTHROMYCIN
     Indication: PAIN
     Dosage: UNK

REACTIONS (2)
  - Cough [Not Recovered/Not Resolved]
  - Skin mass [Not Recovered/Not Resolved]

NARRATIVE: CASE EVENT DATE: 20191101
